FAERS Safety Report 9065906 (Version 1)
Quarter: 2013Q1

REPORT INFORMATION
  Report Type: Spontaneous
  Country: US (occurrence: US)
  Receive Date: 20130214
  Receipt Date: 20130214
  Transmission Date: 20140127
  Serious: Yes (Other)
  Sender: FDA-Public Use
  Company Number: US-SANOFI-AVENTIS-2013SA010062

PATIENT
  Age: 83 Year
  Sex: Female

DRUGS (4)
  1. LANTUS [Suspect]
     Indication: TYPE 2 DIABETES MELLITUS
     Dosage: 45 UNITS IN THE AM AND 15 UNITS IN THE PM
     Route: 058
  2. LANTUS [Suspect]
     Indication: TYPE 2 DIABETES MELLITUS
     Dosage: 35 UNITS IN THE AM AND 10 UNITS IN THE PM
     Route: 058
     Dates: start: 2007
  3. SOLOSTAR [Suspect]
     Indication: TYPE 2 DIABETES MELLITUS
  4. OPTICLICK [Suspect]
     Indication: TYPE 2 DIABETES MELLITUS

REACTIONS (8)
  - Glaucoma [Unknown]
  - Cataract [Unknown]
  - Visual acuity reduced [Unknown]
  - Diplopia [Unknown]
  - Photopsia [Unknown]
  - Blood glucose increased [Unknown]
  - Injection site swelling [Unknown]
  - Injection site extravasation [Unknown]
